FAERS Safety Report 21629312 (Version 2)
Quarter: 2022Q4

REPORT INFORMATION
  Report Type: Spontaneous
  Country: US (occurrence: US)
  Receive Date: 20221122
  Receipt Date: 20221125
  Transmission Date: 20230113
  Serious: Yes (Life-Threatening, Hospitalization, Other)
  Sender: FDA-Public Use
  Company Number: US-UCBSA-2022066416

PATIENT
  Age: 21 Month

DRUGS (4)
  1. FINTEPLA [Suspect]
     Active Substance: FENFLURAMINE
     Indication: Severe myoclonic epilepsy of infancy
     Dosage: 2.2 MG/ML
  2. KEPPRA [Suspect]
     Active Substance: LEVETIRACETAM
     Indication: Severe myoclonic epilepsy of infancy
     Dosage: UNK
  3. VIMPAT [Suspect]
     Active Substance: LACOSAMIDE
     Indication: Severe myoclonic epilepsy of infancy
     Dosage: UNK
  4. ONFI [Concomitant]
     Active Substance: CLOBAZAM
     Indication: Severe myoclonic epilepsy of infancy

REACTIONS (10)
  - Intestinal ischaemia [Unknown]
  - Oxygen saturation decreased [Recovered/Resolved]
  - Febrile status epilepticus [Unknown]
  - Endotracheal intubation complication [Recovered/Resolved]
  - Endotracheal intubation [Recovered/Resolved]
  - Intestinal resection [Unknown]
  - Enterostomy [Unknown]
  - Enterovirus test positive [Unknown]
  - Vasoconstriction [Unknown]
  - Product use in unapproved indication [Unknown]
